FAERS Safety Report 14997160 (Version 4)
Quarter: 2020Q2

REPORT INFORMATION
  Report Type: Spontaneous
  Country: US (occurrence: US)
  Receive Date: 20180611
  Receipt Date: 20200528
  Transmission Date: 20200713
  Serious: Yes (Death, Other)
  Sender: FDA-Public Use
  Company Number: US-ASTRAZENECA-2018SE73931

PATIENT
  Age: 20216 Day
  Sex: Female
  Weight: 67.1 kg

DRUGS (48)
  1. LASIX [Concomitant]
     Active Substance: FUROSEMIDE
     Indication: DIURETIC THERAPY
     Dosage: 40.0MG UNKNOWN
     Route: 048
     Dates: start: 20151028
  2. DYMISTA [Concomitant]
     Active Substance: AZELASTINE HYDROCHLORIDE\FLUTICASONE PROPIONATE
     Dosage: 137-50 MCG
     Route: 065
     Dates: start: 20150807
  3. BETAMETHASONE DIPROPINATE [Concomitant]
     Indication: ECZEMA
     Dosage: TWICE AS NEEDED
     Route: 065
     Dates: start: 20150807
  4. NEXIUM [Suspect]
     Active Substance: ESOMEPRAZOLE MAGNESIUM
     Indication: GASTROOESOPHAGEAL REFLUX DISEASE
     Route: 048
     Dates: start: 2003, end: 2014
  5. NEXIUM [Suspect]
     Active Substance: ESOMEPRAZOLE MAGNESIUM
     Indication: GASTROOESOPHAGEAL REFLUX DISEASE
     Dosage: 40.0MG UNKNOWN
     Route: 048
     Dates: start: 2014
  6. ZANTAC [Concomitant]
     Active Substance: RANITIDINE HYDROCHLORIDE
     Dosage: 150.0MG UNKNOWN
     Route: 065
  7. NEXIUM [Suspect]
     Active Substance: ESOMEPRAZOLE MAGNESIUM
     Indication: GASTROOESOPHAGEAL REFLUX DISEASE
     Dosage: 40.0MG UNKNOWN
     Route: 048
     Dates: start: 20140905
  8. ALDACTAZIDE [Concomitant]
     Active Substance: HYDROCHLOROTHIAZIDE\SPIRONOLACTONE
     Route: 048
     Dates: start: 20150807
  9. ATORVASTATIN [Concomitant]
     Active Substance: ATORVASTATIN
     Dosage: 10.0MG UNKNOWN
     Route: 048
     Dates: start: 20120306
  10. FENOFIBRATE. [Concomitant]
     Active Substance: FENOFIBRATE
     Dosage: 160.0MG UNKNOWN
     Route: 048
     Dates: start: 20130603
  11. METOPROLOL SUCCINATE. [Concomitant]
     Active Substance: METOPROLOL SUCCINATE
     Dosage: 25.0MG UNKNOWN
     Route: 048
     Dates: start: 20121221
  12. CEFUROXIME. [Concomitant]
     Active Substance: CEFUROXIME
     Dosage: 250.0MG UNKNOWN
     Route: 048
     Dates: start: 20131217
  13. BELVIQ [Concomitant]
     Active Substance: LORCASERIN HYDROCHLORIDE
     Dosage: 10.0MG UNKNOWN
     Route: 048
     Dates: start: 20140617
  14. ROLAIDS [Concomitant]
     Active Substance: CALCIUM CARBONATE\MAGNESIUM HYDROXIDE
     Dosage: 150.0MG UNKNOWN
     Route: 065
  15. PREVACID [Suspect]
     Active Substance: LANSOPRAZOLE
     Indication: GASTROOESOPHAGEAL REFLUX DISEASE
     Route: 048
     Dates: start: 2003, end: 2014
  16. LASIX [Concomitant]
     Active Substance: FUROSEMIDE
     Indication: DIURETIC THERAPY
     Dosage: 20.0MG UNKNOWN
     Route: 048
     Dates: start: 20150807
  17. ZETIA [Concomitant]
     Active Substance: EZETIMIBE
     Dosage: 10.0MG UNKNOWN
     Route: 048
     Dates: start: 20120306
  18. TANZEUM [Concomitant]
     Active Substance: ALBIGLUTIDE
     Dosage: 30.0MG UNKNOWN
     Route: 065
     Dates: start: 20150807
  19. LIDODERM [Concomitant]
     Active Substance: LIDOCAINE
     Indication: LOCAL ANAESTHESIA
     Dosage: 30.0MG UNKNOWN
     Route: 065
     Dates: start: 20150807
  20. NUCYNTA [Concomitant]
     Active Substance: TAPENTADOL HYDROCHLORIDE
     Indication: PAIN
     Dosage: 30.0MG UNKNOWN
     Route: 065
     Dates: start: 20150807
  21. PEPCID [Concomitant]
     Active Substance: FAMOTIDINE
  22. ZANTAC [Concomitant]
     Active Substance: RANITIDINE HYDROCHLORIDE
     Dosage: PRESCRIPTION300.0MG UNKNOWN
     Route: 065
  23. NEXIUM 24HR [Suspect]
     Active Substance: ESOMEPRAZOLE MAGNESIUM
     Indication: GASTROOESOPHAGEAL REFLUX DISEASE
     Route: 048
     Dates: start: 2003, end: 2014
  24. PRILOSEC [Suspect]
     Active Substance: OMEPRAZOLE MAGNESIUM
     Indication: GASTROOESOPHAGEAL REFLUX DISEASE
     Route: 048
     Dates: start: 2003, end: 2014
  25. LIVALO [Concomitant]
     Active Substance: PITAVASTATIN CALCIUM
     Route: 048
     Dates: start: 20150807
  26. LIDOCAIN [Concomitant]
     Active Substance: LIDOCAINE
  27. AMLODIPINE BESYLATE. [Concomitant]
     Active Substance: AMLODIPINE BESYLATE
     Dosage: 5.0MG UNKNOWN
     Route: 048
     Dates: start: 20150807
  28. MULTIVITAMIN [Concomitant]
     Active Substance: VITAMINS
     Indication: GASTRIC OPERATION
     Dosage: 30.0MG UNKNOWN
     Route: 065
     Dates: start: 20150807
  29. NABUMETONE. [Concomitant]
     Active Substance: NABUMETONE
     Dosage: 500.0MG UNKNOWN
     Route: 048
     Dates: start: 20120910
  30. PREDNISONE. [Concomitant]
     Active Substance: PREDNISONE
     Dosage: 10.0MG UNKNOWN
     Route: 048
     Dates: start: 20131217
  31. METOPROLOL SUCCINATE. [Concomitant]
     Active Substance: METOPROLOL SUCCINATE
     Dosage: 50.0MG UNKNOWN
     Route: 048
     Dates: start: 20150807
  32. TOPROL XL [Concomitant]
     Active Substance: METOPROLOL SUCCINATE
     Indication: HYPERTENSION
     Dosage: 30.0MG UNKNOWN
     Route: 065
     Dates: start: 20150807
  33. NIZATIDINE. [Concomitant]
     Active Substance: NIZATIDINE
  34. NEXIUM [Suspect]
     Active Substance: ESOMEPRAZOLE MAGNESIUM
     Indication: GASTROOESOPHAGEAL REFLUX DISEASE
     Route: 048
     Dates: start: 2000, end: 2014
  35. PREVACID [Suspect]
     Active Substance: LANSOPRAZOLE
     Indication: GASTROOESOPHAGEAL REFLUX DISEASE
     Route: 048
     Dates: start: 2000, end: 2014
  36. MOTRIN [Concomitant]
     Active Substance: IBUPROFEN
     Indication: PAIN
  37. FLECTOR [Concomitant]
     Active Substance: DICLOFENAC EPOLAMINE
  38. AMLODIPINE BESYLATE. [Concomitant]
     Active Substance: AMLODIPINE BESYLATE
     Dosage: 5.0MG UNKNOWN
     Route: 048
     Dates: start: 20121126
  39. LOSARTAN. [Concomitant]
     Active Substance: LOSARTAN
     Dosage: 50.0MG UNKNOWN
     Route: 048
     Dates: start: 20120304
  40. TRANSDERM [Concomitant]
     Indication: NAUSEA
     Dosage: 1.5MG UNKNOWN
     Route: 065
     Dates: start: 20121012
  41. CRESTOR [Concomitant]
     Active Substance: ROSUVASTATIN CALCIUM
     Indication: BLOOD CHOLESTEROL INCREASED
     Dosage: 10.0MG UNKNOWN
     Route: 048
     Dates: start: 20130513
  42. INDOMETHACIN. [Concomitant]
     Active Substance: INDOMETHACIN
     Route: 065
     Dates: start: 20131017
  43. BENZONATATE. [Concomitant]
     Active Substance: BENZONATATE
     Dosage: 100.0MG UNKNOWN
     Route: 048
     Dates: start: 20150511
  44. LEVAQUIN [Concomitant]
     Active Substance: LEVOFLOXACIN
     Indication: ANTIBIOTIC THERAPY
     Dosage: 30.0MG UNKNOWN
     Route: 065
     Dates: start: 20150807
  45. LEVOFLOXACIN. [Concomitant]
     Active Substance: LEVOFLOXACIN
     Dosage: 750.0MG UNKNOWN
     Route: 048
     Dates: start: 20131220
  46. FLONASE [Concomitant]
     Active Substance: FLUTICASONE PROPIONATE
     Indication: SINUS DISORDER
     Dosage: 30.0MG UNKNOWN
     Route: 065
     Dates: start: 20150807
  47. FISH OIL [Concomitant]
     Active Substance: FISH OIL
     Indication: ROUTINE HEALTH MAINTENANCE
     Dosage: 30.0MG UNKNOWN
     Route: 065
     Dates: start: 20150807
  48. ROLAIDS [Concomitant]
     Active Substance: CALCIUM CARBONATE\MAGNESIUM HYDROXIDE
     Dosage: PRESCRIPTION300.0MG UNKNOWN
     Route: 065

REACTIONS (8)
  - Death [Fatal]
  - Renal injury [Unknown]
  - End stage renal disease [Unknown]
  - Oesophageal carcinoma [Unknown]
  - Acute kidney injury [Unknown]
  - Chronic kidney disease [Unknown]
  - Tubulointerstitial nephritis [Unknown]
  - Renal impairment [Not Recovered/Not Resolved]

NARRATIVE: CASE EVENT DATE: 20150807
